FAERS Safety Report 15660272 (Version 1)
Quarter: 2018Q4

REPORT INFORMATION
  Report Type: Spontaneous
  Country: US (occurrence: US)
  Receive Date: 20181127
  Receipt Date: 20181127
  Transmission Date: 20190205
  Serious: Yes (Hospitalization, Other)
  Sender: FDA-Public Use
  Company Number: US-MACLEODS PHARMACEUTICALS US LTD-MAC2018018727

PATIENT

DRUGS (8)
  1. RISPERIDONE. [Interacting]
     Active Substance: RISPERIDONE
     Indication: PRODUCT USED FOR UNKNOWN INDICATION
     Dosage: UNK
     Route: 065
  2. PHYSOSTIGMINE [Interacting]
     Active Substance: PHYSOSTIGMINE
     Indication: ANTICHOLINERGIC SYNDROME
     Dosage: 1 MILLIGRAM (ADDITIONAL 1 MG)
     Route: 065
  3. PHYSOSTIGMINE [Interacting]
     Active Substance: PHYSOSTIGMINE
     Dosage: 1 MILLIGRAM, ADDITIONAL 1 MG
     Route: 065
  4. QUETIAPINE. [Suspect]
     Active Substance: QUETIAPINE
     Indication: PRODUCT USED FOR UNKNOWN INDICATION
     Dosage: UNK
     Route: 065
  5. AMITRIPTYLLINE [Interacting]
     Active Substance: AMITRIPTYLINE
     Indication: PRODUCT USED FOR UNKNOWN INDICATION
     Dosage: UNK
     Route: 065
  6. LITHIUM. [Interacting]
     Active Substance: LITHIUM
     Indication: PRODUCT USED FOR UNKNOWN INDICATION
     Dosage: UNK
     Route: 065
  7. ALPRAZOLAM. [Interacting]
     Active Substance: ALPRAZOLAM
     Indication: PRODUCT USED FOR UNKNOWN INDICATION
     Dosage: UNK
     Route: 065
  8. HYDROXYZINE [Interacting]
     Active Substance: HYDROXYZINE HYDROCHLORIDE
     Indication: PRODUCT USED FOR UNKNOWN INDICATION
     Dosage: UNK
     Route: 065

REACTIONS (8)
  - Confusional state [Unknown]
  - Drug interaction [Unknown]
  - Dystonia [Recovered/Resolved]
  - Drug abuse [Unknown]
  - Delirium [Recovering/Resolving]
  - Intentional overdose [Unknown]
  - Speech disorder [Unknown]
  - Anticholinergic syndrome [Unknown]
